FAERS Safety Report 5337387-1 (Version None)
Quarter: 2007Q2

REPORT INFORMATION
  Report Type: 
  Country: None (occurrence: None)
  Receive Date: 20070529
  Receipt Date: 20070517
  Transmission Date: 20071010
  Serious: Yes (Other)
  Sender: FDA-Public Use
  Company Number: JP-PFIZER INC-2007041198

PATIENT

DRUGS (1)
  1. LIPITOR [Suspect]
     Route: 048
     Dates: start: 20070301, end: 20070401

REACTIONS (1)
  - WHITE BLOOD CELL COUNT DECREASED [None]
